FAERS Safety Report 14729531 (Version 4)
Quarter: 2019Q2

REPORT INFORMATION
  Report Type: Report from Study
  Country: US (occurrence: US)
  Receive Date: 20180406
  Receipt Date: 20190418
  Transmission Date: 20190711
  Serious: Yes (Hospitalization)
  Sender: FDA-Public Use
  Company Number: US-ACTELION-A-US2016-145665

PATIENT
  Sex: Female
  Weight: 72.56 kg

DRUGS (4)
  1. ORENITRAM [Concomitant]
     Active Substance: TREPROSTINIL
     Dosage: 2.75 MG, TID
  2. ORENITRAM [Concomitant]
     Active Substance: TREPROSTINIL
     Dosage: 3 MG, TID
  3. OPSUMIT [Suspect]
     Active Substance: MACITENTAN
     Indication: PULMONARY ARTERIAL HYPERTENSION
     Dosage: 10 MG, QD
     Route: 048
     Dates: start: 20160321
  4. ADCIRCA [Concomitant]
     Active Substance: TADALAFIL

REACTIONS (13)
  - Fall [Unknown]
  - Complex regional pain syndrome [Unknown]
  - Eye haemorrhage [Unknown]
  - Localised infection [Unknown]
  - Headache [Unknown]
  - Ammonia increased [Unknown]
  - Infection [Unknown]
  - Pain in extremity [Unknown]
  - Nausea [Unknown]
  - Limb injury [Unknown]
  - Gastrointestinal infection [Unknown]
  - Head injury [Unknown]
  - Inflammation [Unknown]
